FAERS Safety Report 6342047-4 (Version None)
Quarter: 2009Q3

REPORT INFORMATION
  Report Type: 
  Country: None (occurrence: None)
  Receive Date: 20090903
  Receipt Date: 20090826
  Transmission Date: 20100115
  Serious: Yes (Life-Threatening, Other)
  Sender: FDA-Public Use
  Company Number: 2009SP022826

PATIENT
  Age: 67 Year
  Sex: Female

DRUGS (2)
  1. PEG-INTRON [Suspect]
     Indication: HEPATITIS C
     Dosage: ; SC
     Route: 058
     Dates: start: 20081127, end: 20090521
  2. REBETOL [Suspect]
     Indication: HEPATITIS C
     Dosage: ; PO
     Route: 048
     Dates: start: 20081127, end: 20090521

REACTIONS (3)
  - ANAEMIA HAEMOLYTIC AUTOIMMUNE [None]
  - ANAEMIA MEGALOBLASTIC [None]
  - PANCYTOPENIA [None]
